FAERS Safety Report 17470581 (Version 1)
Quarter: 2020Q1

REPORT INFORMATION
  Report Type: Report from Study
  Country: None (occurrence: IT)
  Receive Date: 20200228
  Receipt Date: 20200228
  Transmission Date: 20200409
  Serious: Yes (Other)
  Sender: FDA-Public Use
  Company Number: IT-ABBVIE-20K-083-3295145-00

PATIENT
  Age: 77 Year
  Sex: Male

DRUGS (1)
  1. DUODOPA [Suspect]
     Active Substance: CARBIDOPA\LEVODOPA
     Indication: PARKINSON^S DISEASE
     Dosage: MD 8+3??CR 2.8 (13H)??ED 2.5
     Route: 050
     Dates: start: 20181016

REACTIONS (2)
  - Eye operation [Unknown]
  - Glaucoma [Unknown]

NARRATIVE: CASE EVENT DATE: 202002
